FAERS Safety Report 9340456 (Version 1)
Quarter: 2013Q2

REPORT INFORMATION
  Report Type: Spontaneous
  Country: ES (occurrence: None)
  Receive Date: 20130605
  Receipt Date: 20130605
  Transmission Date: 20140414
  Serious: Yes (Other)
  Sender: FDA-Public Use
  Company Number: AUR-APL-2013-04532

PATIENT
  Age: 73 Year
  Sex: Male

DRUGS (4)
  1. LEVOFLOXACIN (LEVOFLOXACIN) [Suspect]
  2. AMOXICILLIN (AMOXICILLIN) [Suspect]
  3. CIPROFLOXACIN (CIPROFLOXACIN) [Suspect]
     Route: 048
  4. MOXIFLOXACIN [Suspect]
     Route: 048

REACTIONS (4)
  - Pruritus [None]
  - Erythema [None]
  - Oedema [None]
  - Drug eruption [None]
